FAERS Safety Report 20945190 (Version 1)
Quarter: 2022Q2

REPORT INFORMATION
  Report Type: Spontaneous
  Country: US (occurrence: None)
  Receive Date: 20220609
  Receipt Date: 20220609
  Transmission Date: 20220721
  Serious: Yes (unspecified)
  Sender: FDA-Public Use
  Company Number: None

PATIENT
  Age: 46 Year
  Sex: Male
  Weight: 83.6 kg

DRUGS (4)
  1. HEPARIN [Suspect]
     Active Substance: HEPARIN SODIUM
     Indication: Catheterisation cardiac
     Dosage: FREQUENCY : AS NEEDED;?
     Route: 040
     Dates: start: 20220527, end: 20220527
  2. EFFIENT [Concomitant]
     Active Substance: PRASUGREL HYDROCHLORIDE
     Dates: start: 20220527, end: 20220527
  3. ASPIRIN [Concomitant]
     Active Substance: ASPIRIN
     Dates: start: 20220527, end: 20220527
  4. Synergy Drug-eluding Stent [Concomitant]
     Dates: start: 20220527, end: 20220527

REACTIONS (4)
  - Chest pain [None]
  - Dyspnoea [None]
  - Electrocardiogram ST segment elevation [None]
  - Vascular stent thrombosis [None]

NARRATIVE: CASE EVENT DATE: 20220527
